FAERS Safety Report 7074258-7 (Version None)
Quarter: 2010Q4

REPORT INFORMATION
  Report Type: 
  Country: None (occurrence: None)
  Receive Date: 20101029
  Receipt Date: 20101021
  Transmission Date: 20110411
  Serious: Yes (Other)
  Sender: FDA-Public Use
  Company Number: US-US-EMD SERONO, INC.-7023691

PATIENT
  Sex: Female

DRUGS (1)
  1. REBIF [Suspect]
     Indication: MULTIPLE SCLEROSIS
     Route: 058
     Dates: start: 20030130

REACTIONS (8)
  - AMNESIA [None]
  - COGNITIVE DISORDER [None]
  - DEPRESSION [None]
  - EYE SWELLING [None]
  - FACE INJURY [None]
  - FALL [None]
  - MUSCULAR WEAKNESS [None]
  - SELF-INJURIOUS IDEATION [None]
